FAERS Safety Report 13058913 (Version 1)
Quarter: 2016Q4

REPORT INFORMATION
  Report Type: Report from Study
  Country: US (occurrence: US)
  Receive Date: 20161223
  Receipt Date: 20161223
  Transmission Date: 20170207
  Serious: Yes (Hospitalization, Other)
  Sender: FDA-Public Use
  Company Number: PHEH2016US033493

PATIENT
  Age: 76 Year
  Sex: Male

DRUGS (1)
  1. AFINITOR [Suspect]
     Active Substance: EVEROLIMUS
     Indication: PROSTATE CANCER
     Route: 065

REACTIONS (1)
  - Gingivitis [Recovered/Resolved]

NARRATIVE: CASE EVENT DATE: 20161109
